FAERS Safety Report 9292388 (Version 2)
Quarter: 2014Q2

REPORT INFORMATION
  Report Type: Spontaneous
  Country: US (occurrence: US)
  Receive Date: 20130516
  Receipt Date: 20140428
  Transmission Date: 20141212
  Serious: Yes (Congenital Anomaly, Other)
  Sender: FDA-Public Use
  Company Number: US-PFIZER INC-2013148013

PATIENT
  Sex: Male

DRUGS (3)
  1. ZOLOFT [Suspect]
     Dosage: UNK
     Route: 064
     Dates: start: 20040121, end: 20040313
  2. MIDOL [Concomitant]
     Dosage: UNK
     Route: 064
  3. IBUPROFEN [Concomitant]
     Dosage: UNK
     Route: 064

REACTIONS (5)
  - Maternal exposure during pregnancy [Unknown]
  - Talipes [Unknown]
  - Cryptorchism [Unknown]
  - Congenital anomaly [Unknown]
  - Premature baby [Unknown]
